FAERS Safety Report 14068097 (Version 8)
Quarter: 2018Q3

REPORT INFORMATION
  Report Type: Spontaneous
  Country: JP (occurrence: JP)
  Receive Date: 20171010
  Receipt Date: 20180703
  Transmission Date: 20181010
  Serious: Yes (Hospitalization)
  Sender: FDA-Public Use
  Company Number: JP-ROCHE-2005728

PATIENT
  Age: 33 Year
  Sex: Female
  Weight: 54.5 kg

DRUGS (5)
  1. TALION (JAPAN) [Concomitant]
     Active Substance: BEPOTASTINE
     Indication: URTICARIA CHRONIC
     Dosage: 10 MG, QID
     Route: 048
     Dates: start: 20160928
  2. PREDNISOLON [Concomitant]
     Active Substance: PREDNISOLONE
     Indication: URTICARIA CHRONIC
     Route: 048
     Dates: start: 20130127
  3. ACTONEL [Concomitant]
     Active Substance: RISEDRONATE SODIUM
     Indication: OSTEOPOROSIS PROPHYLAXIS
     Dosage: 75 MG, QD
     Route: 048
     Dates: start: 20130127
  4. XOLAIR [Suspect]
     Active Substance: OMALIZUMAB
     Indication: URTICARIA CHRONIC
     Route: 058
     Dates: start: 201709, end: 20171003
  5. GASTER [Concomitant]
     Active Substance: FAMOTIDINE
     Indication: URTICARIA CHRONIC
     Dosage: 20 MG, BID
     Route: 048
     Dates: start: 20160629

REACTIONS (2)
  - Decreased appetite [Recovering/Resolving]
  - Anaphylactic shock [Recovering/Resolving]

NARRATIVE: CASE EVENT DATE: 201709
